FAERS Safety Report 9318232 (Version 1)
Quarter: 2013Q2

REPORT INFORMATION
  Report Type: Spontaneous
  Country: US (occurrence: US)
  Receive Date: 20130530
  Receipt Date: 20130530
  Transmission Date: 20140414
  Serious: No
  Sender: FDA-Public Use
  Company Number: US-NOVEN-12US005922

PATIENT
  Age: 13 Year
  Sex: Male

DRUGS (5)
  1. DAYTRANA [Suspect]
     Indication: ATTENTION DEFICIT/HYPERACTIVITY DISORDER
     Dosage: 10 MG, QD
     Route: 062
     Dates: start: 20121222, end: 20121222
  2. NEXIUM [Concomitant]
     Indication: HIATUS HERNIA
     Route: 048
  3. ZANTAC [Concomitant]
     Indication: HIATUS HERNIA
     Route: 048
  4. REGLAN [Concomitant]
     Indication: HIATUS HERNIA
     Route: 048
  5. SYNTHROID [Concomitant]
     Indication: HYPOTHYROIDISM
     Route: 048

REACTIONS (6)
  - Motor dysfunction [Recovered/Resolved]
  - Muscle spasms [Recovered/Resolved]
  - Logorrhoea [Recovered/Resolved]
  - Application site pain [Recovered/Resolved]
  - Application site erythema [Recovered/Resolved]
  - Insomnia [Recovered/Resolved]
